FAERS Safety Report 10429477 (Version 4)
Quarter: 2020Q3

REPORT INFORMATION
  Report Type: Spontaneous
  Country: US (occurrence: US)
  Receive Date: 20140904
  Receipt Date: 20200814
  Transmission Date: 20201102
  Serious: Yes (Other)
  Sender: FDA-Public Use
  Company Number: US-PFIZER INC-2014243892

PATIENT
  Age: 49 Year
  Sex: Female

DRUGS (3)
  1. LYRICA [Suspect]
     Active Substance: PREGABALIN
     Indication: FIBROMYALGIA
     Dosage: 100 MG, THRICE DAILY
     Route: 048
  2. LYRICA [Suspect]
     Active Substance: PREGABALIN
     Indication: SEIZURE
     Dosage: 100 MG, TWICE DAILY
     Route: 048
  3. LYRICA [Suspect]
     Active Substance: PREGABALIN
     Indication: PAIN
     Dosage: 6 DF, DAILY
     Route: 048

REACTIONS (6)
  - Weight increased [Recovering/Resolving]
  - Withdrawal syndrome [Unknown]
  - Swelling [Unknown]
  - Anxiety [Unknown]
  - Food craving [Unknown]
  - Gastrointestinal disorder [Unknown]
